FAERS Safety Report 23770217 (Version 1)
Quarter: 2024Q2

REPORT INFORMATION
  Report Type: Spontaneous
  Country: US (occurrence: US)
  Receive Date: 20240422
  Receipt Date: 20240422
  Transmission Date: 20240716
  Serious: No
  Sender: FDA-Public Use
  Company Number: MIQ-04032023-134(V1)

PATIENT
  Sex: Female

DRUGS (1)
  1. SILENOR [Suspect]
     Active Substance: DOXEPIN HYDROCHLORIDE
     Indication: Insomnia
     Dosage: 3 MILLIGRAM
     Route: 065

REACTIONS (5)
  - Malaise [Unknown]
  - Dizziness [Unknown]
  - Insomnia [Unknown]
  - Shoulder fracture [Unknown]
  - Drug ineffective [Unknown]
